FAERS Safety Report 10355507 (Version 1)
Quarter: 2014Q3

REPORT INFORMATION
  Report Type: Spontaneous
  Country: US (occurrence: None)
  Receive Date: 20140728
  Receipt Date: 20140728
  Transmission Date: 20150326
  Serious: Yes (Hospitalization)
  Sender: FDA-Public Use
  Company Number: SYM-2014-23370

PATIENT
  Age: 51 Year
  Sex: Female

DRUGS (1)
  1. METRONDIAZOLE 500 MG [Suspect]
     Active Substance: METRONIDAZOLE
     Indication: CLOSTRIDIUM DIFFICILE COLITIS

REACTIONS (6)
  - Ataxia [None]
  - White matter lesion [None]
  - Toxicity to various agents [None]
  - Dysarthria [None]
  - Central nervous system lesion [None]
  - Fall [None]
